FAERS Safety Report 10799773 (Version 1)
Quarter: 2015Q1

REPORT INFORMATION
  Report Type: Report from Study
  Country: US (occurrence: US)
  Receive Date: 20150216
  Receipt Date: 20150216
  Transmission Date: 20150721
  Serious: No
  Sender: FDA-Public Use
  Company Number: US-ABBVIE-14K-163-1237657-00

PATIENT
  Sex: Male

DRUGS (4)
  1. METHOTREXATE [Suspect]
     Active Substance: METHOTREXATE
     Indication: PRODUCT USED FOR UNKNOWN INDICATION
  2. HUMIRA [Suspect]
     Active Substance: ADALIMUMAB
     Indication: RHEUMATOID ARTHRITIS
  3. HUMIRA [Suspect]
     Active Substance: ADALIMUMAB
     Indication: PSORIASIS
  4. ATENOLOL. [Concomitant]
     Active Substance: ATENOLOL
     Indication: BLOOD PRESSURE
     Dates: end: 2014

REACTIONS (7)
  - Tongue disorder [Unknown]
  - Mass [Not Recovered/Not Resolved]
  - Aphasia [Unknown]
  - Rash papular [Not Recovered/Not Resolved]
  - Pharyngeal mass [Unknown]
  - Hepatic enzyme increased [Not Recovered/Not Resolved]
  - Rash pruritic [Not Recovered/Not Resolved]
